FAERS Safety Report 6404790-8 (Version None)
Quarter: 2009Q4

REPORT INFORMATION
  Report Type: 
  Country: None (occurrence: None)
  Receive Date: 20091016
  Receipt Date: 20091006
  Transmission Date: 20100525
  Serious: Yes (Hospitalization, Other)
  Sender: FDA-Public Use
  Company Number: PHEH2009US13130

PATIENT
  Sex: Female

DRUGS (9)
  1. EXELON [Suspect]
     Dosage: 4.6 MG, UNK
     Dates: start: 20090930
  2. GABAPENTIN [Concomitant]
  3. NAMENDA [Concomitant]
  4. DETROL [Concomitant]
  5. SERTRALINE HCL [Concomitant]
  6. OMEPRAZOLE [Concomitant]
  7. VITAMIN D [Concomitant]
  8. CHLORDIAZEPOXIDE [Concomitant]
  9. CLIDINIUM [Concomitant]

REACTIONS (2)
  - CYANOSIS [None]
  - HEART RATE INCREASED [None]
